FAERS Safety Report 24239630 (Version 1)
Quarter: 2024Q3

REPORT INFORMATION
  Report Type: Spontaneous
  Country: US (occurrence: US)
  Receive Date: 20240822
  Receipt Date: 20240822
  Transmission Date: 20241016
  Serious: No
  Sender: AVADEL CNS PHARMA
  Company Number: US-AVADEL CNS PHARMACEUTICALS, LLC-2024AVA00844

PATIENT
  Sex: Female

DRUGS (35)
  1. LUMRYZ [Suspect]
     Active Substance: SODIUM OXYBATE
     Indication: Narcolepsy
     Dosage: 4.5 G, NIGHTLY
     Route: 048
     Dates: start: 20240517, end: 20240523
  2. LUMRYZ [Suspect]
     Active Substance: SODIUM OXYBATE
     Indication: Cataplexy
  3. LUMRYZ [Suspect]
     Active Substance: SODIUM OXYBATE
     Indication: Sleep apnoea syndrome
  4. LUMRYZ [Suspect]
     Active Substance: SODIUM OXYBATE
     Indication: Narcolepsy
     Dosage: 7.5 G, ONCE NIGHTLY
     Route: 048
     Dates: start: 20240524, end: 2024
  5. LUMRYZ [Suspect]
     Active Substance: SODIUM OXYBATE
     Indication: Cataplexy
     Dosage: 7.5 G, ONCE NIGHTLY
     Route: 048
     Dates: start: 2024, end: 2024
  6. LUMRYZ [Suspect]
     Active Substance: SODIUM OXYBATE
     Indication: Sleep apnoea syndrome
  7. LUMRYZ [Suspect]
     Active Substance: SODIUM OXYBATE
     Indication: Sleep apnoea syndrome
     Dosage: 6 G, ONCE NIGHTLY
     Route: 048
     Dates: start: 2024, end: 2024
  8. LUMRYZ [Suspect]
     Active Substance: SODIUM OXYBATE
     Indication: Cataplexy
  9. LUMRYZ [Suspect]
     Active Substance: SODIUM OXYBATE
     Indication: Narcolepsy
  10. TYLENOL [Concomitant]
     Active Substance: ACETAMINOPHEN
     Dosage: AS NEEDED
  11. AMMONIUM LACTATE [Concomitant]
     Active Substance: AMMONIUM LACTATE
     Dosage: LOTION
  12. CALCIUM WITH VITAMIN D [CALCIUM CARBONATE;COLECALCIFEROL] [Concomitant]
  13. MINERALS\VITAMINS [Concomitant]
     Active Substance: MINERALS\VITAMINS
  14. CLOBETASOL [Concomitant]
     Active Substance: CLOBETASOL
  15. DULOXETINE [Concomitant]
     Active Substance: DULOXETINE
  16. ESTRADIOL [Concomitant]
     Active Substance: ESTRADIOL
  17. FERROUS SULFATE [Concomitant]
     Active Substance: FERROUS SULFATE
  18. GEMTESA [Concomitant]
     Active Substance: VIBEGRON
     Dosage: 75 MG, DAILY
  19. GLUCOSAMINE + CHONDORITIN [Concomitant]
  20. HYDROCORTISONE [Concomitant]
     Active Substance: HYDROCORTISONE\HYDROCORTISONE ACETATE
     Dosage: AS NEEDED
  21. HYDROXYZINE [Concomitant]
     Active Substance: HYDROXYZINE HYDROCHLORIDE
     Dosage: 25 MG, AS NEEDED
  22. KETOCONAZOLE [Concomitant]
     Active Substance: KETOCONAZOLE
     Dosage: 3 TIMES WEEKLY
  23. LEVOTHYROXINE [Concomitant]
     Active Substance: LEVOTHYROXINE\LEVOTHYROXINE SODIUM
  24. LIDOCAINE [Concomitant]
     Active Substance: LIDOCAINE
     Dosage: UNK UNK, AS NEEDED
  25. LINACLOTIDE [Concomitant]
     Active Substance: LINACLOTIDE
     Dosage: 72 ?G, DAILY
  26. METHYLPHENIDATE [Concomitant]
     Active Substance: METHYLPHENIDATE
     Dosage: 10 MG, AS NEEDED
  27. MIEBO [Concomitant]
     Active Substance: PERFLUOROHEXYLOCTANE
  28. OMEGA-3 FATTY ACIDS [Concomitant]
     Active Substance: OMEGA-3 FATTY ACIDS
     Dosage: 1000 MG, DAILY
  29. OMEPRAZOLE [Concomitant]
     Active Substance: OMEPRAZOLE
     Dosage: 20 MG, TWICE DAILY
  30. MIRALAX [Concomitant]
     Active Substance: POLYETHYLENE GLYCOL 3350
     Dosage: TWICE DAILY
  31. ROSUVASTATIN [Concomitant]
     Active Substance: ROSUVASTATIN\ROSUVASTATIN CALCIUM
     Dosage: 10 MG, ONCE DAILY
  32. SUCRALFATE [Concomitant]
     Active Substance: SUCRALFATE
     Dosage: 10 MG, ONCE DAILY
  33. TOPIRAMATE [Concomitant]
     Active Substance: TOPIRAMATE
  34. TRIAMCINOLONE [Concomitant]
     Active Substance: TRIAMCINOLONE
     Dosage: UNK %
  35. VITAMIN D NOS [Concomitant]
     Active Substance: CHOLECALCIFEROL\ERGOCALCIFEROL
     Dosage: 2000 IU, DAILY

REACTIONS (12)
  - Initial insomnia [Not Recovered/Not Resolved]
  - Insomnia [Not Recovered/Not Resolved]
  - Sleep talking [Not Recovered/Not Resolved]
  - Abnormal sleep-related event [Not Recovered/Not Resolved]
  - Abnormal dreams [Not Recovered/Not Resolved]
  - Head injury [Recovered/Resolved]
  - Fall [Recovered/Resolved]
  - Nocturia [Not Recovered/Not Resolved]
  - Headache [Not Recovered/Not Resolved]
  - Enuresis [Recovered/Resolved]
  - Somnolence [Not Recovered/Not Resolved]
  - Tremor [Not Recovered/Not Resolved]

NARRATIVE: CASE EVENT DATE: 20240101
